FAERS Safety Report 10370804 (Version 1)
Quarter: 2014Q3

REPORT INFORMATION
  Report Type: Spontaneous
  Country: US (occurrence: US)
  Receive Date: 20140808
  Receipt Date: 20140808
  Transmission Date: 20150326
  Serious: Yes (Hospitalization)
  Sender: FDA-Public Use
  Company Number: US-SA-2014SA105775

PATIENT
  Age: 78 Year
  Sex: Female
  Weight: 59.1 kg

DRUGS (10)
  1. INVESTIGATIONAL DRUG [Suspect]
     Active Substance: INVESTIGATIONAL PRODUCT
     Indication: SARCOMA METASTATIC
     Route: 042
     Dates: start: 20140605, end: 20140605
  2. GEMCITABINE [Concomitant]
     Active Substance: GEMCITABINE\GEMCITABINE HYDROCHLORIDE
     Indication: SARCOMA METASTATIC
     Dosage: 992.3 MG ( DAY 1 AND DAY 8 OF 21 DAY CYCLE)
     Route: 065
     Dates: start: 20140605, end: 20140605
  3. GEMCITABINE [Concomitant]
     Active Substance: GEMCITABINE\GEMCITABINE HYDROCHLORIDE
     Indication: SARCOMA METASTATIC
     Dosage: 992.3 MG ( DAY 1 AND DAY 8 OF 21 DAY CYCLE)
     Route: 065
  4. AMBIEN [Suspect]
     Active Substance: ZOLPIDEM TARTRATE
     Indication: INSOMNIA
     Route: 048
     Dates: start: 2004, end: 20140710
  5. INVESTIGATIONAL DRUG [Suspect]
     Active Substance: INVESTIGATIONAL PRODUCT
     Indication: SARCOMA METASTATIC
     Route: 042
  6. TAXOTERE [Concomitant]
     Active Substance: DOCETAXEL
     Indication: SARCOMA METASTATIC
     Route: 042
  7. TAXOTERE [Concomitant]
     Active Substance: DOCETAXEL
     Indication: SARCOMA METASTATIC
     Route: 042
     Dates: start: 20140702, end: 20140702
  8. INVESTIGATIONAL DRUG [Suspect]
     Active Substance: INVESTIGATIONAL PRODUCT
     Indication: SARCOMA METASTATIC
     Route: 042
     Dates: start: 20140702, end: 20140702
  9. GEMCITABINE [Concomitant]
     Active Substance: GEMCITABINE\GEMCITABINE HYDROCHLORIDE
     Indication: SARCOMA METASTATIC
     Dosage: 992.3 MG ( DAY 1 AND DAY 8 OF 21 DAY CYCLE)
     Route: 065
     Dates: start: 20140702, end: 20140702
  10. TAXOTERE [Concomitant]
     Active Substance: DOCETAXEL
     Indication: SARCOMA METASTATIC
     Route: 042
     Dates: start: 20140612, end: 20140612

REACTIONS (1)
  - Hip fracture [Recovered/Resolved]

NARRATIVE: CASE EVENT DATE: 20140710
